FAERS Safety Report 4527817-7 (Version None)
Quarter: 2004Q4

REPORT INFORMATION
  Report Type: 
  Country: None (occurrence: None)
  Receive Date: 20041123
  Receipt Date: 20040706
  Transmission Date: 20050328
  Serious: Yes (Hospitalization)
  Sender: FDA-Public Use
  Company Number: ATO-04-0637(0)

PATIENT
  Age: 73 Year
  Sex: Male
  Weight: 70.7611 kg

DRUGS (6)
  1. TRISENOX [Suspect]
     Indication: MYELODYSPLASTIC SYNDROME
     Dosage: 18 MG (0.25 MG/KG, BIW) INTRAVENOUS BOLUS
     Route: 040
     Dates: start: 20040606, end: 20040601
  2. MAGNESIUM OXIDE [Suspect]
     Dosage: PER ORAL
     Route: 048
  3. THALIDOMIDE [Concomitant]
  4. ALLOPURINOL [Concomitant]
  5. NEXIUM [Concomitant]
  6. MEGACE [Concomitant]

REACTIONS (1)
  - DIARRHOEA [None]
